FAERS Safety Report 17740221 (Version 3)
Quarter: 2021Q2

REPORT INFORMATION
  Report Type: Spontaneous
  Country: US (occurrence: US)
  Receive Date: 20200504
  Receipt Date: 20210603
  Transmission Date: 20210716
  Serious: No
  Sender: FDA-Public Use
  Company Number: US-PFIZER INC-2020175650

PATIENT
  Age: 47 Year
  Sex: Female
  Weight: 67.13 kg

DRUGS (1)
  1. LYRICA [Suspect]
     Active Substance: PREGABALIN
     Indication: FIBROMYALGIA
     Dosage: 200 MG, 2X/DAY
     Route: 048

REACTIONS (4)
  - Blood pressure abnormal [Unknown]
  - Blood pressure increased [Recovering/Resolving]
  - Tooth disorder [Unknown]
  - Weight decreased [Unknown]
